FAERS Safety Report 4674422-8 (Version None)
Quarter: 2005Q2

REPORT INFORMATION
  Report Type: 
  Country: None (occurrence: None)
  Receive Date: 20050526
  Receipt Date: 20040602
  Transmission Date: 20051028
  Serious: Yes (Other)
  Sender: FDA-Public Use
  Company Number: PHEH2004US06141

PATIENT
  Age: 70 Year
  Sex: Female

DRUGS (6)
  1. ZOMETA [Suspect]
     Indication: MULTIPLE MYELOMA
     Dosage: 4 MG EVERY 4 WEEKS
     Route: 042
     Dates: start: 20020101
  2. EPOGEN [Concomitant]
     Indication: ANAEMIA
  3. DECADRON [Concomitant]
     Dates: start: 20030728, end: 20040309
  4. THALIDOMIDE [Concomitant]
     Indication: MULTIPLE MYELOMA
     Dosage: 50 MG, QD
     Route: 048
     Dates: start: 20020322, end: 20020513
  5. VELCADE [Concomitant]
     Dosage: 2 MG 2X/WK X 2 WK, OFF 10 D, REP
     Dates: start: 20030728, end: 20040213
  6. XYLOCAINE [Concomitant]
     Indication: LOCAL ANAESTHESIA

REACTIONS (4)
  - BONE DEBRIDEMENT [None]
  - GINGIVITIS [None]
  - OSTEONECROSIS [None]
  - TOOTH EXTRACTION [None]
